FAERS Safety Report 10182360 (Version 1)
Quarter: 2014Q2

REPORT INFORMATION
  Report Type: Spontaneous
  Country: DE (occurrence: DE)
  Receive Date: 20140520
  Receipt Date: 20140520
  Transmission Date: 20141212
  Serious: Yes (Congenital Anomaly, Other)
  Sender: FDA-Public Use
  Company Number: DE-PFIZER INC-2014132686

PATIENT
  Age: 1 Day
  Sex: Female
  Weight: 2.89 kg

DRUGS (6)
  1. VENLAFAXINE HCL [Suspect]
     Indication: DEPRESSION
     Dosage: 225 MG, DAILY 0-38.5 GESTATIONAL WEEKS
     Route: 064
     Dates: start: 20121220, end: 20130917
  2. ELONTRIL [Suspect]
     Indication: DEPRESSION
     Dosage: 300 MG, DAILY 0-38.5 GESTATIONAL WEEKS
     Route: 064
     Dates: start: 20121220, end: 20130917
  3. PRILOCAINE [Suspect]
     Indication: PUDENDAL BLOCK
     Dosage: 38.5-38.5 GESTATIONAL WEEK
     Route: 064
     Dates: start: 20130917, end: 20130917
  4. L-THYROXIN [Concomitant]
     Indication: HYPOTHYROIDISM
     Dosage: 75 UG, DAILY
     Route: 064
     Dates: start: 20121220, end: 20130917
  5. VOMEX A [Concomitant]
     Indication: GASTROENTERITIS
     Dosage: 35.-36. GESTATIONAL WEEK
     Route: 064
  6. RHOPHYLAC [Concomitant]
     Indication: PROPHYLAXIS AGAINST RH ISOIMMUNISATION
     Dosage: 28. - 28. GESTATIONAL WEEK
     Route: 064
     Dates: start: 20130704, end: 20130704

REACTIONS (10)
  - Maternal exposure during pregnancy [Unknown]
  - Neonatal asphyxia [Recovered/Resolved]
  - Convulsion [Recovered/Resolved]
  - Hypothermia [Recovered/Resolved]
  - Feeding disorder neonatal [Recovered/Resolved]
  - Neonatal respiratory distress syndrome [Recovered/Resolved]
  - Persistent foetal circulation [Recovered/Resolved]
  - Patent ductus arteriosus [Recovering/Resolving]
  - Atrial septal defect [Recovering/Resolving]
  - Drug withdrawal syndrome neonatal [Recovered/Resolved]
